FAERS Safety Report 7077992 (Version 10)
Quarter: 2017Q1

REPORT INFORMATION
  Report Type: Report from Study
  Country: JP (occurrence: JP)
  Receive Date: 20090811
  Receipt Date: 20170320
  Transmission Date: 20170429
  Serious: Yes (Death, Life-Threatening, Hospitalization, Other)
  Sender: FDA-Public Use
  Company Number: JP-BRISTOL-MYERS SQUIBB COMPANY-14565055

PATIENT
  Age: 54 Year
  Sex: Male

DRUGS (24)
  1. DASATINIB [Suspect]
     Active Substance: DASATINIB
     Indication: CHRONIC MYELOID LEUKAEMIA
     Dosage: 4FEB-3MAR,28D;16-26MAR(11D).INTER ON6MAR09,31MAR-16APR.07-26MAY,6JUN-30JUL09(54D):180MG/D
     Route: 048
     Dates: start: 20090204, end: 20090730
  2. EXTERNAL-CYCLOPHOSPHAMIDE [Suspect]
     Active Substance: CYCLOPHOSPHAMIDE
     Indication: CHRONIC MYELOID LEUKAEMIA
     Dosage: 1800 MG, UNK
     Route: 042
     Dates: start: 20080223, end: 20080223
  3. DECADRON [Suspect]
     Active Substance: DEXAMETHASONE
     Indication: CHRONIC MYELOID LEUKAEMIA
     Dosage: PO,04FEB09-17FEB09; 40 MG/DAY, IV, 06JUN09-11JUN09; 6-8 MG/DAY, PO, 06JUN09-29JUL09.
     Route: 042
     Dates: start: 20090606, end: 20090615
  4. LASIX [Suspect]
     Active Substance: FUROSEMIDE
     Indication: PRODUCT USED FOR UNKNOWN INDICATION
     Dosage: 1 DF-20-80 MG  ON 25MAR09 DOSE INCREASED TO 60MG AND THEN TO 80MG  THEN DECREASED TO 40MG
     Route: 048
     Dates: start: 20090117
  5. MAXIPIME [Concomitant]
     Active Substance: CEFEPIME HYDROCHLORIDE
     Indication: PRODUCT USED FOR UNKNOWN INDICATION
     Dosage: 2 G, QD
     Route: 042
     Dates: start: 20090304, end: 20090306
  6. HUMAN NORMAL IMMUNOGLOBULIN [Concomitant]
     Active Substance: HUMAN IMMUNOGLOBULIN G
     Indication: PRODUCT USED FOR UNKNOWN INDICATION
     Dosage: INJ
     Route: 042
     Dates: start: 20090323, end: 20090325
  7. VINCRISTINE SULFATE. [Concomitant]
     Active Substance: VINCRISTINE SULFATE
     Indication: CHRONIC MYELOID LEUKAEMIA
     Dosage: FORM: INJ.
     Route: 042
     Dates: start: 20090607, end: 20090709
  8. IMATINIB MESILATE [Concomitant]
     Active Substance: IMATINIB MESYLATE
     Indication: PRODUCT USED FOR UNKNOWN INDICATION
     Dosage: 28MAY02-05NOV07, 07OCT08-04FEB09
     Route: 065
     Dates: start: 20020528
  9. NIFEDIPINE. [Concomitant]
     Active Substance: NIFEDIPINE
     Indication: HYPERTENSION
     Dosage: TABS
     Route: 048
  10. ZANTAC [Concomitant]
     Active Substance: RANITIDINE HYDROCHLORIDE
     Indication: PROPHYLAXIS AGAINST GASTROINTESTINAL ULCER
     Dosage: 300 MG, QD
     Route: 048
  11. ACICLOVIR [Concomitant]
     Active Substance: ACYCLOVIR
     Indication: PRODUCT USED FOR UNKNOWN INDICATION
     Dosage: INJ
     Route: 042
     Dates: start: 20090323, end: 20090329
  12. DAUNOMYCIN [Suspect]
     Active Substance: DAUNORUBICIN
     Indication: CHRONIC MYELOID LEUKAEMIA
     Dosage: 90 MG, UNK
     Route: 042
     Dates: start: 20090223, end: 20090225
  13. LEVOFLOXACIN. [Concomitant]
     Active Substance: LEVOFLOXACIN
     Indication: PRODUCT USED FOR UNKNOWN INDICATION
     Dosage: 100 MG, TID
     Route: 048
     Dates: start: 20090528
  14. LENDORMIN [Concomitant]
     Active Substance: BROTIZOLAM
     Indication: INSOMNIA
     Dosage: TAB
     Route: 048
  15. SODIUM ALGINATE [Concomitant]
     Active Substance: SODIUM ALGINATE
     Indication: GASTRITIS PROPHYLAXIS
     Dosage: FORM:SOL
     Route: 048
     Dates: end: 20090331
  16. ONCOVIN [Suspect]
     Active Substance: VINCRISTINE SULFATE
     Indication: CHRONIC MYELOID LEUKAEMIA
     Dosage: THERAPY DATES: 02MAR09,09MAR09,16MAR09
     Route: 042
     Dates: start: 20090223, end: 20090316
  17. FILGRASTIM [Concomitant]
     Active Substance: FILGRASTIM
     Indication: PRODUCT USED FOR UNKNOWN INDICATION
     Dosage: INJ
     Route: 058
     Dates: start: 20090304, end: 20090310
  18. ALLOPURINOL. [Concomitant]
     Active Substance: ALLOPURINOL
     Indication: PROPHYLAXIS
     Dosage: TAB
     Route: 048
  19. CARVEDILOL. [Concomitant]
     Active Substance: CARVEDILOL
     Indication: HYPERTENSION
     Dosage: TAB
     Route: 048
  20. MECOBALAMIN [Concomitant]
     Active Substance: METHYLCOBALAMIN
     Indication: PROPHYLAXIS
     Dosage: FORM: TAB.29-JUN-2009
     Route: 048
     Dates: end: 20090605
  21. PREDONINE [Concomitant]
     Active Substance: PREDNISOLONE
     Indication: CHRONIC MYELOID LEUKAEMIA
     Dosage: TAB
     Route: 048
     Dates: start: 20090218, end: 20090603
  22. VANCOCIN [Concomitant]
     Active Substance: VANCOMYCIN HYDROCHLORIDE
     Indication: PRODUCT USED FOR UNKNOWN INDICATION
     Dosage: INJ
     Route: 042
     Dates: start: 20090306, end: 20090310
  23. FUROSEMIDE. [Concomitant]
     Active Substance: FUROSEMIDE
     Indication: PRODUCT USED FOR UNKNOWN INDICATION
     Dosage: 1 DF = 40-80MG/DAY
     Route: 048
     Dates: start: 20090117
  24. FIRSTCIN [Concomitant]
     Active Substance: CEFOZOPRAN HYDROCHLORIDE
     Indication: PRODUCT USED FOR UNKNOWN INDICATION
     Dosage: 6JUN-15JUN09:  30JUL-2AUG09
     Route: 042
     Dates: start: 20090619, end: 20090802

REACTIONS (19)
  - Pleural effusion [Recovering/Resolving]
  - Neutrophil count decreased [Recovered/Resolved]
  - Alanine aminotransferase increased [Recovered/Resolved]
  - Constipation [Recovered/Resolved]
  - Pulmonary congestion [Recovered/Resolved]
  - Cardiac failure [Recovered/Resolved]
  - Platelet count decreased [Not Recovered/Not Resolved]
  - White blood cell count decreased [Recovered/Resolved]
  - Pneumocystis jirovecii pneumonia [Fatal]
  - Ascites [Recovering/Resolving]
  - Sepsis [Recovered/Resolved]
  - Herpes zoster [Recovered/Resolved]
  - Diarrhoea [Recovering/Resolving]
  - Hypokalaemia [Recovered/Resolved]
  - Anaemia [Not Recovered/Not Resolved]
  - Disseminated intravascular coagulation [Recovering/Resolving]
  - Interstitial lung disease [Fatal]
  - Pneumonia [Recovered/Resolved]
  - Pyrexia [Unknown]

NARRATIVE: CASE EVENT DATE: 20090209
